FAERS Safety Report 5499978-7 (Version None)
Quarter: 2007Q4

REPORT INFORMATION
  Report Type: 
  Country: None (occurrence: None)
  Receive Date: 20071026
  Receipt Date: 20071016
  Transmission Date: 20080405
  Serious: Yes (Disabling)
  Sender: FDA-Public Use
  Company Number: GB-PFIZER INC-2007088683

PATIENT
  Age: 86 Year
  Sex: Female

DRUGS (5)
  1. ATORVASTATIN [Suspect]
     Dosage: DAILY DOSE:10MG
     Route: 048
     Dates: start: 20051001, end: 20051101
  2. ACETYLSALICYLIC ACID SRT [Concomitant]
     Dosage: DAILY DOSE:75MG
  3. BISOPROLOL FUMARATE [Concomitant]
     Dosage: DAILY DOSE:5MG
  4. FUROSEMIDE [Concomitant]
     Dosage: DAILY DOSE:40MG
  5. OMEPRAZOLE [Concomitant]
     Dosage: DAILY DOSE:40MG

REACTIONS (3)
  - BLOOD ALKALINE PHOSPHATASE INCREASED [None]
  - COLD SWEAT [None]
  - TREMOR [None]
